FAERS Safety Report 16112150 (Version 5)
Quarter: 2019Q4

REPORT INFORMATION
  Report Type: Report from Study
  Country: US (occurrence: US)
  Receive Date: 20190325
  Receipt Date: 20191113
  Transmission Date: 20200122
  Serious: Yes (Other)
  Sender: FDA-Public Use
  Company Number: US-TESAROUBC-2019-TSO00290-US

PATIENT
  Age: 71 Year
  Sex: Female
  Weight: 60 kg

DRUGS (5)
  1. NIRAPARIB [Suspect]
     Active Substance: NIRAPARIB
     Indication: OVARIAN CANCER
     Dosage: 100 MG, QPM WITHOUT FOOD
     Route: 048
     Dates: start: 20190114
  2. NIRAPARIB [Suspect]
     Active Substance: NIRAPARIB
     Dosage: 300 MG, QD
     Route: 048
  3. NIRAPARIB [Suspect]
     Active Substance: NIRAPARIB
     Dosage: 100 MG, QD
     Route: 048
  4. NIRAPARIB [Suspect]
     Active Substance: NIRAPARIB
     Dosage: 100 MG, QPM WITHOUF FOOD
     Route: 048
  5. NIRAPARIB [Suspect]
     Active Substance: NIRAPARIB
     Dosage: 200 MG QPM WITHOUT FOOD
     Route: 048

REACTIONS (14)
  - Cytopenia [Unknown]
  - Fatigue [Unknown]
  - Underdose [Unknown]
  - White blood cell count decreased [Recovering/Resolving]
  - Blood urea increased [Unknown]
  - Rash [Recovered/Resolved]
  - Neutrophil count decreased [Unknown]
  - Eosinophil count increased [Unknown]
  - Blood pressure increased [Recovering/Resolving]
  - Dyspepsia [Unknown]
  - Abdominal discomfort [Recovering/Resolving]
  - Red blood cell count decreased [Recovering/Resolving]
  - Haemoglobin decreased [Unknown]
  - Urinary tract infection [Unknown]

NARRATIVE: CASE EVENT DATE: 2019
